FAERS Safety Report 5568673-8 (Version None)
Quarter: 2007Q4

REPORT INFORMATION
  Report Type: 
  Country: None (occurrence: None)
  Receive Date: 20071220
  Receipt Date: 20071214
  Transmission Date: 20080405
  Serious: Yes (Other)
  Sender: FDA-Public Use
  Company Number: US-BAYER-US-2007-039184

PATIENT
  Age: 37 Year
  Sex: Female
  Weight: 99 kg

DRUGS (1)
  1. MIRENA [Suspect]
     Indication: CONTRACEPTION
     Route: 015
     Dates: start: 20070920, end: 20071015

REACTIONS (2)
  - ENDOMETRITIS [None]
  - VAGINAL HAEMORRHAGE [None]
